FAERS Safety Report 8622129-4 (Version None)
Quarter: 2012Q3

REPORT INFORMATION
  Report Type: 
  Country: None (occurrence: None)
  Receive Date: 20120826
  Receipt Date: 20120810
  Transmission Date: 20120928
  Serious: Yes (Other)
  Sender: FDA-Public Use
  Company Number: PHHY2012JP070968

PATIENT
  Age: 84 Year
  Sex: Male

DRUGS (3)
  1. DEPAS [Concomitant]
     Route: 048
  2. EXELON [Suspect]
     Indication: DEMENTIA ALZHEIMER'S TYPE
     Route: 062
  3. ASPIRIN [Concomitant]
     Route: 048

REACTIONS (1)
  - SYNCOPE [None]
